FAERS Safety Report 23201751 (Version 1)
Quarter: 2023Q4

REPORT INFORMATION
  Report Type: Spontaneous
  Country: CZ (occurrence: CZ)
  Receive Date: 20231120
  Receipt Date: 20231120
  Transmission Date: 20240109
  Serious: Yes (Hospitalization, Other)
  Sender: FDA-Public Use
  Company Number: CZ-Merck Healthcare KGaA-2023479262

PATIENT
  Age: 70 Year
  Sex: Female

DRUGS (2)
  1. LEVOTHYROXINE [Suspect]
     Active Substance: LEVOTHYROXINE
     Indication: Post procedural hypothyroidism
     Dosage: 25-50 UG
  2. LEVOTHYROXINE [Suspect]
     Active Substance: LEVOTHYROXINE
     Dosage: 75 UG?100 UG

REACTIONS (23)
  - Asthenia [Unknown]
  - Hypotension [Unknown]
  - Dehydration [Unknown]
  - Benign neoplasm of thyroid gland [Unknown]
  - Disease progression [Unknown]
  - IgA nephropathy [Unknown]
  - Hypokalaemia [Unknown]
  - Chronic kidney disease [Unknown]
  - Normocytic anaemia [Unknown]
  - Lumbar vertebral fracture [Unknown]
  - Cardiac failure [Unknown]
  - Bradycardia [Unknown]
  - Diarrhoea [Unknown]
  - Atrial fibrillation [Unknown]
  - Cataract [Unknown]
  - Thyroxine abnormal [Unknown]
  - Blood thyroid stimulating hormone abnormal [Unknown]
  - Osteopenia [Unknown]
  - Post procedural hypoparathyroidism [Unknown]
  - Nasopharyngitis [Unknown]
  - Hypocalcaemia [Unknown]
  - Osteoarthritis [Unknown]
  - Ill-defined disorder [Unknown]

NARRATIVE: CASE EVENT DATE: 20080101
